FAERS Safety Report 15125302 (Version 1)
Quarter: 2018Q3

REPORT INFORMATION
  Report Type: Spontaneous
  Country: GB (occurrence: GB)
  Receive Date: 20180710
  Receipt Date: 20180710
  Transmission Date: 20181010
  Serious: Yes (Hospitalization)
  Sender: FDA-Public Use
  Company Number: GB-LINDE-GB-LHC-2018164

PATIENT
  Age: 60 Year
  Sex: Female

DRUGS (1)
  1. MEDICAL OXYGEN 100% MEDICINAL GAS, COMPRESSED [Suspect]
     Active Substance: OXYGEN
     Indication: PRODUCT USED FOR UNKNOWN INDICATION
     Route: 065

REACTIONS (2)
  - Cluster headache [Unknown]
  - Drug ineffective [Unknown]
